FAERS Safety Report 12160734 (Version 1)
Quarter: 2016Q1

REPORT INFORMATION
  Report Type: Report from Study
  Country: US (occurrence: US)
  Receive Date: 20160308
  Receipt Date: 20160308
  Transmission Date: 20160526
  Serious: Yes (Other)
  Sender: FDA-Public Use
  Company Number: US-ABBVIE-16K-163-1573936-00

PATIENT
  Sex: Male

DRUGS (2)
  1. HUMIRA [Suspect]
     Active Substance: ADALIMUMAB
     Indication: CROHN^S DISEASE
     Route: 058
     Dates: start: 20150714
  2. PREDNISONE. [Suspect]
     Active Substance: PREDNISONE
     Indication: PRODUCT USED FOR UNKNOWN INDICATION
     Dosage: TAPER
     Route: 048

REACTIONS (5)
  - IgA nephropathy [Not Recovered/Not Resolved]
  - Pyrexia [Recovered/Resolved]
  - Headache [Recovered/Resolved]
  - Contusion [Recovered/Resolved]
  - Crying [Recovered/Resolved]
